FAERS Safety Report 16173631 (Version 1)
Quarter: 2019Q2

REPORT INFORMATION
  Report Type: Spontaneous
  Country: US (occurrence: US)
  Receive Date: 20190408
  Receipt Date: 20190408
  Transmission Date: 20190711
  Serious: Yes (Other)
  Sender: FDA-Public Use
  Company Number: None

PATIENT
  Age: 76 Year
  Sex: Female
  Weight: 59.4 kg

DRUGS (3)
  1. VITAMIN D3 1000 MG [Concomitant]
  2. PROBIOTIC 20 BILLION [Concomitant]
  3. PROLIA [Suspect]
     Active Substance: DENOSUMAB
     Indication: OSTEOPOROSIS
     Dosage: ?          QUANTITY:1 60MG/ML, 1ML PFS;OTHER FREQUENCY:EVERY SIX MONTHS;?
     Route: 058
     Dates: start: 20150108

REACTIONS (3)
  - Eczema [None]
  - Pruritus [None]
  - Rash [None]

NARRATIVE: CASE EVENT DATE: 20190225
